FAERS Safety Report 5291603-3 (Version None)
Quarter: 2007Q2

REPORT INFORMATION
  Report Type: 
  Country: None (occurrence: None)
  Receive Date: 20070410
  Receipt Date: 20070320
  Transmission Date: 20071010
  Serious: Yes (Life-Threatening)
  Sender: FDA-Public Use
  Company Number: EC-RB-005726-07

PATIENT
  Age: 60 Year
  Sex: Female

DRUGS (2)
  1. BUPRENORPHINE HCL [Suspect]
     Route: 030
     Dates: start: 20070201, end: 20070201
  2. DICLOFENAC SODIUM [Suspect]
     Indication: DRUG USE FOR UNKNOWN INDICATION
     Dosage: DOSAGE UNKNOWN
     Route: 048

REACTIONS (2)
  - GASTRIC HAEMORRHAGE [None]
  - VOMITING [None]
